FAERS Safety Report 21281167 (Version 1)
Quarter: 2022Q3

REPORT INFORMATION
  Report Type: Spontaneous
  Country: JP (occurrence: JP)
  Receive Date: 20220901
  Receipt Date: 20220901
  Transmission Date: 20221027
  Serious: Yes (Life-Threatening, Hospitalization)
  Sender: FDA-Public Use
  Company Number: JP-STRIDES ARCOLAB LIMITED-2022SP010859

PATIENT
  Age: 66 Year
  Sex: Male

DRUGS (4)
  1. PREDNISOLONE [Suspect]
     Active Substance: PREDNISOLONE
     Indication: Castleman^s disease
     Dosage: 20 MILLIGRAM, UNKNOWN
     Route: 048
  2. PREDNISOLONE [Suspect]
     Active Substance: PREDNISOLONE
     Dosage: 25 MILLIGRAM, BID
     Route: 042
  3. CYCLOSPORINE [Suspect]
     Active Substance: CYCLOSPORINE
     Indication: Castleman^s disease
     Dosage: 50 MILLIGRAM, BID
     Route: 048
  4. SARILUMAB [Suspect]
     Active Substance: SARILUMAB
     Indication: Castleman^s disease
     Dosage: 200 MILLIGRAM FORTNIGHTLY
     Route: 058

REACTIONS (3)
  - Acute respiratory distress syndrome [Unknown]
  - COVID-19 [Recovered/Resolved]
  - Off label use [Unknown]
